FAERS Safety Report 6542920-8 (Version None)
Quarter: 2010Q1

REPORT INFORMATION
  Report Type: 
  Country: None (occurrence: None)
  Receive Date: 20100120
  Receipt Date: 20100113
  Transmission Date: 20100710
  Serious: Yes (Death, Other)
  Sender: FDA-Public Use
  Company Number: GB-ELI_LILLY_AND_COMPANY-GB201001002900

PATIENT
  Sex: Male

DRUGS (3)
  1. ALIMTA [Suspect]
     Indication: LUNG ADENOCARCINOMA
     Dosage: 500 MG/M2, UNK
     Route: 042
     Dates: start: 20090722
  2. GEMZAR [Suspect]
     Indication: LUNG ADENOCARCINOMA
     Dates: end: 20080201
  3. CARBOPLATIN [Concomitant]
     Indication: LUNG ADENOCARCINOMA
     Dates: end: 20080201

REACTIONS (3)
  - CARDIAC DEATH [None]
  - HAEMOPTYSIS [None]
  - MALIGNANT NEOPLASM PROGRESSION [None]
